FAERS Safety Report 15333177 (Version 8)
Quarter: 2022Q3

REPORT INFORMATION
  Report Type: Report from Study
  Country: US (occurrence: None)
  Receive Date: 20180830
  Receipt Date: 20220711
  Transmission Date: 20221026
  Serious: Yes (Hospitalization)
  Sender: FDA-Public Use
  Company Number: US-ROCHE-2175615

PATIENT
  Age: 70 Year
  Sex: Female
  Weight: 59.1 kg

DRUGS (29)
  1. ATEZOLIZUMAB [Suspect]
     Active Substance: ATEZOLIZUMAB
     Indication: Malignant peritoneal neoplasm
     Dosage: ON 07/AUG/2018, SHE RECEIVED THE MOST RECENT DOSE OF ATEZOLIZUMAB PRIOR TO EVENT ONSET.
     Route: 041
     Dates: start: 20180717
  2. BEVACIZUMAB [Suspect]
     Active Substance: BEVACIZUMAB
     Indication: Malignant peritoneal neoplasm
     Dosage: ON 07/AUG/2018, SHE RECEIVED THE MOST RECENT DOSE OF BEVACIZUMAB (872MG) PRIOR TO EVENT ONSET.
     Route: 042
     Dates: start: 20180807
  3. PACLITAXEL [Suspect]
     Active Substance: PACLITAXEL
     Indication: Malignant peritoneal neoplasm
     Dosage: ON 07/AUG/2018, SHE RECEIVED THE MOST RECENT DOSE OF PACLITAXEL (175MG AND 285MG) PRIOR TO EVENT ONS
     Route: 042
     Dates: start: 20180717
  4. CARBOPLATIN [Suspect]
     Active Substance: CARBOPLATIN
     Indication: Malignant peritoneal neoplasm
     Dosage: CARBOPLATIN AT A DOSE TO ACHIEVE A TARGET AREA UNDER THE CURVE (AUC) OF 6 MILLIGRAMS PER MILLILITER*
     Route: 042
     Dates: start: 20180717
  5. VIMPAT [Concomitant]
     Active Substance: LACOSAMIDE
     Dates: start: 20170401
  6. FISH OIL [Concomitant]
     Active Substance: FISH OIL
     Dates: start: 2008
  7. CALCIUM CITRATE\CHOLECALCIFEROL [Concomitant]
     Active Substance: CALCIUM CITRATE\CHOLECALCIFEROL
     Dates: start: 2008
  8. FIBER COMPLETE [Concomitant]
     Dates: start: 2008
  9. TYLENOL [Concomitant]
     Active Substance: ACETAMINOPHEN
     Indication: Arthritis
     Dates: start: 2016
  10. TYLENOL [Concomitant]
     Active Substance: ACETAMINOPHEN
     Indication: Pain
  11. IMODIUM AD [Concomitant]
     Active Substance: LOPERAMIDE HYDROCHLORIDE
     Indication: Diarrhoea
     Dates: start: 2018
  12. FISH OIL [Concomitant]
     Active Substance: FISH OIL
     Dates: start: 2008
  13. BENADRYL [Concomitant]
     Active Substance: DIPHENHYDRAMINE HYDROCHLORIDE
     Indication: Contrast media allergy
     Dates: start: 20180601
  14. BENADRYL [Concomitant]
     Active Substance: DIPHENHYDRAMINE HYDROCHLORIDE
     Dates: start: 20180807, end: 20180807
  15. COMPAZINE [Concomitant]
     Active Substance: PROCHLORPERAZINE MALEATE
     Indication: Nausea
     Dates: start: 20180717
  16. COMPAZINE [Concomitant]
     Active Substance: PROCHLORPERAZINE MALEATE
     Indication: Vomiting
  17. MIRALAX [Concomitant]
     Active Substance: POLYETHYLENE GLYCOL 3350
     Indication: Constipation
     Dates: start: 20180807
  18. PREDNISONE [Concomitant]
     Active Substance: PREDNISONE
     Dates: start: 20180807
  19. DECADRON [Concomitant]
     Active Substance: DEXAMETHASONE
     Indication: Nausea
     Route: 042
     Dates: start: 20180807, end: 20180807
  20. PEPCID [Concomitant]
     Active Substance: FAMOTIDINE
     Dates: start: 20180807, end: 20180807
  21. SUSTOL [Concomitant]
     Active Substance: GRANISETRON
     Indication: Nausea
     Dates: start: 20180807, end: 20180807
  22. SUSTOL [Concomitant]
     Active Substance: GRANISETRON
     Indication: Vomiting
  23. CINVANTI [Concomitant]
     Active Substance: APREPITANT
     Dates: start: 20180807, end: 20180807
  24. TYLENOL PM [Concomitant]
     Active Substance: ACETAMINOPHEN\DIPHENHYDRAMINE
     Indication: Insomnia
     Dates: start: 20180808, end: 20180812
  25. AMBIEN [Concomitant]
     Active Substance: ZOLPIDEM TARTRATE
     Indication: Insomnia
     Dates: start: 20110821
  26. ZARXIO [Concomitant]
     Active Substance: FILGRASTIM-SNDZ
     Indication: Neutropenia
     Dates: start: 20180821, end: 20180826
  27. ZARXIO [Concomitant]
     Active Substance: FILGRASTIM-SNDZ
     Dates: start: 20180824, end: 20180824
  28. MELATONIN [Concomitant]
     Active Substance: MELATONIN
     Indication: Insomnia
     Dates: start: 20180812, end: 20180820
  29. MAGNESIUM [Concomitant]
     Active Substance: MAGNESIUM
     Indication: Constipation
     Dates: start: 20180814, end: 20180814

REACTIONS (1)
  - Systemic inflammatory response syndrome [Recovered/Resolved]

NARRATIVE: CASE EVENT DATE: 20180824
